FAERS Safety Report 9052222 (Version 2)
Quarter: 2013Q2

REPORT INFORMATION
  Report Type: Spontaneous
  Country: US (occurrence: US)
  Receive Date: 20130206
  Receipt Date: 20130401
  Transmission Date: 20140414
  Serious: Yes (Other)
  Sender: FDA-Public Use
  Company Number: PHEH2012US018534

PATIENT
  Age: 56 Year
  Sex: Female

DRUGS (13)
  1. GILENYA [Suspect]
     Dosage: 0.5 MG, QD
     Route: 048
     Dates: start: 200812
  2. LOSARTAN POTASSIUM [Concomitant]
     Dosage: 25 MG, UNK
  3. NUVIGIL [Concomitant]
     Dosage: 50 MG, UNK
  4. BACLOFEN [Concomitant]
     Dosage: 10 MG, UNK
  5. OXYBUTYNIN [Concomitant]
     Dosage: 15 MG, UNK
  6. VENLAFAXINE [Concomitant]
     Dosage: 75 MG, UNK
  7. LOVASTATIN [Concomitant]
     Dosage: 20 MG, UNK
  8. METFORMIN [Concomitant]
     Dosage: 500 MG, UNK
  9. VITAMIN D [Concomitant]
  10. FISH OIL [Concomitant]
  11. CALCIUM [Concomitant]
     Route: 048
  12. BIOTIN [Concomitant]
  13. MULTIVITAMIN [Concomitant]

REACTIONS (4)
  - Hand fracture [Unknown]
  - Muscle spasticity [Unknown]
  - Impaired healing [Unknown]
  - Fall [Recovering/Resolving]
